FAERS Safety Report 6935846-9 (Version None)
Quarter: 2010Q3

REPORT INFORMATION
  Report Type: 
  Country: None (occurrence: None)
  Receive Date: 20100823
  Receipt Date: 20100816
  Transmission Date: 20110219
  Serious: Yes (Death)
  Sender: FDA-Public Use
  Company Number: DE-BAYER-201034059GPV

PATIENT
  Age: 71 Year
  Sex: Male
  Weight: 95 kg

DRUGS (14)
  1. SORAFENIB [Suspect]
     Indication: ACUTE MYELOID LEUKAEMIA
     Dosage: TOTAL DAILY DOSE: 800 MG  UNIT DOSE: 200 MG
     Route: 048
     Dates: start: 20080607, end: 20080615
  2. CYTARABINE [Suspect]
     Indication: ACUTE MYELOID LEUKAEMIA
     Route: 041
     Dates: start: 20080529, end: 20080604
  3. DAUNORUBICIN HCL [Suspect]
     Indication: ACUTE MYELOID LEUKAEMIA
     Route: 041
     Dates: start: 20080531, end: 20080602
  4. PANTOPRAZOLE SODIUM [Concomitant]
     Dosage: 1-0-0
  5. EXJADE [Concomitant]
     Dosage: 5-0-0
  6. ALLOPURINOL [Concomitant]
     Dosage: 0-0-1
  7. IBUPROFEN [Concomitant]
     Dosage: 0-1-0-
  8. NOVALGIN [Concomitant]
     Dosage: TOTAL DAILY DOSE: 90 GTT
  9. KEVATRIL [Concomitant]
     Dosage: ADMINISTERED IN THE CONTEXT OF CHEMOTHERAPY
  10. KLACID [Concomitant]
  11. SAB SIMPLEX [Concomitant]
  12. GENTAMICIN [Concomitant]
  13. LASIX [Concomitant]
     Dosage: 1-1-1-
  14. KONAKION [Concomitant]
     Dosage: 1 VIAL 1X PER DAY

REACTIONS (4)
  - ACUTE PULMONARY OEDEMA [None]
  - CARDIAC FAILURE [None]
  - MYOCARDIAL INFARCTION [None]
  - RESPIRATORY FAILURE [None]
